FAERS Safety Report 24716238 (Version 1)
Quarter: 2024Q4

REPORT INFORMATION
  Report Type: Spontaneous
  Country: FR (occurrence: FR)
  Receive Date: 20241210
  Receipt Date: 20241210
  Transmission Date: 20250115
  Serious: Yes (Hospitalization)
  Sender: RANBAXY
  Company Number: FR-SUN PHARMACEUTICAL INDUSTRIES LTD-2024RR-482542

PATIENT
  Age: 77 Year
  Sex: Male
  Weight: 51 kg

DRUGS (7)
  1. GEMCITABINE [Suspect]
     Active Substance: GEMCITABINE
     Indication: Bladder transitional cell carcinoma
     Dosage: 1988 MILLIGRAM IN TOTAL
     Route: 040
     Dates: start: 20240920, end: 20240920
  2. CISPLATIN [Suspect]
     Active Substance: CISPLATIN
     Indication: Bladder transitional cell carcinoma
     Dosage: 111 MILLIGRAM IN TOTAL
     Route: 040
     Dates: start: 20240920, end: 20240920
  3. ONDANSETRON [Suspect]
     Active Substance: ONDANSETRON
     Indication: Prophylaxis of nausea and vomiting
     Dosage: 8 MILLIGRAM, DAILY
     Route: 040
     Dates: start: 20240920, end: 20240921
  4. EMEND [Suspect]
     Active Substance: APREPITANT
     Indication: Prophylaxis of nausea and vomiting
     Dosage: 125 MILLIGRAM, DAILY
     Route: 048
     Dates: start: 20240920, end: 20240920
  5. EMEND [Suspect]
     Active Substance: APREPITANT
     Dosage: 80 MILLIGRAM, DAILY
     Route: 048
     Dates: start: 20240921, end: 20240922
  6. LENOGRASTIM [Suspect]
     Active Substance: LENOGRASTIM
     Indication: Colony stimulating factor therapy
     Dosage: UNK
     Route: 058
     Dates: start: 20240922, end: 20240925
  7. CHOLECALCIFEROL [Concomitant]
     Active Substance: CHOLECALCIFEROL
     Indication: Product used for unknown indication
     Dosage: UNK
     Route: 065

REACTIONS (5)
  - Hypokalaemia [Recovered/Resolved]
  - Hyponatraemia [Recovered/Resolved]
  - Hypochloraemia [Recovered/Resolved]
  - Headache [Recovered/Resolved]
  - Nausea [Recovered/Resolved]

NARRATIVE: CASE EVENT DATE: 20240926
